FAERS Safety Report 25013985 (Version 1)
Quarter: 2025Q1

REPORT INFORMATION
  Report Type: Spontaneous
  Country: US (occurrence: None)
  Receive Date: 20250226
  Receipt Date: 20250226
  Transmission Date: 20250409
  Serious: Yes (Hospitalization)
  Sender: FDA-CTU
  Company Number: None

PATIENT
  Age: 72 Year
  Sex: Male

DRUGS (15)
  1. EPCORITAMAB [Suspect]
     Active Substance: EPCORITAMAB
     Indication: Diffuse large B-cell lymphoma
     Dates: start: 20240416
  2. Metoprolol succinate 100 mg tablet daily [Concomitant]
  3. empaglifozin 10 mg daily [Concomitant]
  4. esomeprazole 40 mg capsule daily [Concomitant]
  5. furosemide 40 mg tablet daily [Concomitant]
  6. latanoprost 0.005% eye drops daily [Concomitant]
  7. levofloxacin 250 mg tablet daily [Concomitant]
  8. loperamide 2 mg capsule  as needed [Concomitant]
  9. magnesium oxide 400 mg tablet daily [Concomitant]
  10. metformin 500 mg tablet twice daily [Concomitant]
  11. ondansetron 8 mg ODT as needed [Concomitant]
  12. potassium chloride 20 mEq packet twice daily [Concomitant]
  13. rosuvastatin 5 mg tablet twice daily [Concomitant]
  14. sacubitril-valsartan 24-26 mg tablet twice daily [Concomitant]
  15. valsartan 40 mg tablet twice daily [Concomitant]

REACTIONS (2)
  - Haemophagocytic lymphohistiocytosis [None]
  - Pseudomonas test positive [None]

NARRATIVE: CASE EVENT DATE: 20240424
